FAERS Safety Report 8993626 (Version 1)
Quarter: 2013Q1

REPORT INFORMATION
  Report Type: Spontaneous
  Country: GB (occurrence: GB)
  Receive Date: 20130102
  Receipt Date: 20130102
  Transmission Date: 20140127
  Serious: Yes (Other)
  Sender: FDA-Public Use
  Company Number: GB-ASTRAZENECA-2012SE95555

PATIENT
  Age: 44 Year
  Sex: Female

DRUGS (3)
  1. CRESTOR [Suspect]
     Indication: BLOOD CHOLESTEROL INCREASED
     Route: 048
  2. FENOFIBRATE [Concomitant]
  3. TREDAPTIVE [Concomitant]

REACTIONS (2)
  - Gastric disorder [Unknown]
  - Off label use [Unknown]
